FAERS Safety Report 4540382-3 (Version None)
Quarter: 2004Q4

REPORT INFORMATION
  Report Type: 
  Country: None (occurrence: None)
  Receive Date: 20041222
  Receipt Date: 20041201
  Transmission Date: 20050328
  Serious: Yes (Death, Hospitalization)
  Sender: FDA-Public Use
  Company Number: AU_041208231

PATIENT
  Age: 42 Year
  Sex: Female

DRUGS (2)
  1. OLANZAPINE [Suspect]
     Indication: ABNORMAL BEHAVIOUR
     Dosage: 30 MG/1 DAY
  2. VALIUM [Concomitant]

REACTIONS (5)
  - APNOEA [None]
  - DRUG TOXICITY [None]
  - INFLUENZA LIKE ILLNESS [None]
  - INJURY ASPHYXIATION [None]
  - SEDATION [None]
